FAERS Safety Report 8557864 (Version 3)
Quarter: 2013Q2

REPORT INFORMATION
  Report Type: Report from Study
  Country: MX (occurrence: MX)
  Receive Date: 20120511
  Receipt Date: 20130523
  Transmission Date: 20140414
  Serious: Yes (Death, Hospitalization)
  Sender: FDA-Public Use
  Company Number: PHHY2012MX039768

PATIENT
  Age: 77 Year
  Sex: Female

DRUGS (3)
  1. DIOVAN [Suspect]
     Indication: HYPERTENSION
     Dosage: 1 DF (80 MG), PER DAY
     Dates: start: 200507
  2. NOVOTIRAL [Concomitant]
     Dosage: 0.5 DF, UNK
  3. TAFIL [Concomitant]
     Dates: start: 201204

REACTIONS (6)
  - Infarction [Fatal]
  - Haemorrhage [Unknown]
  - Fall [Unknown]
  - Depression [Not Recovered/Not Resolved]
  - Anxiety [Not Recovered/Not Resolved]
  - Obsessive thoughts [Unknown]
